FAERS Safety Report 7758383-0 (Version None)
Quarter: 2011Q3

REPORT INFORMATION
  Report Type: 
  Country: None (occurrence: None)
  Receive Date: 20110919
  Receipt Date: 20110914
  Transmission Date: 20111222
  Serious: Yes (Other)
  Sender: FDA-Public Use
  Company Number: US-PFIZER INC-2011218312

PATIENT
  Sex: Male

DRUGS (1)
  1. CHANTIX [Suspect]
     Dosage: UNK

REACTIONS (7)
  - TREMOR [None]
  - VOMITING [None]
  - INSOMNIA [None]
  - SUICIDAL IDEATION [None]
  - ANGER [None]
  - ILL-DEFINED DISORDER [None]
  - PSYCHOTIC DISORDER [None]
